FAERS Safety Report 21656585 (Version 2)
Quarter: 2024Q1

REPORT INFORMATION
  Report Type: Spontaneous
  Country: DE (occurrence: DE)
  Receive Date: 20221129
  Receipt Date: 20240329
  Transmission Date: 20240410
  Serious: Yes (Hospitalization, Other)
  Sender: FDA-Public Use
  Company Number: DE-Desitin-2022-03189

PATIENT
  Age: 15 Year
  Sex: Male

DRUGS (12)
  1. LAMOTRIGINE [Suspect]
     Active Substance: LAMOTRIGINE
     Indication: Epilepsy
     Dosage: UNK
     Route: 065
     Dates: start: 202111
  2. LAMOTRIGINE [Suspect]
     Active Substance: LAMOTRIGINE
     Dosage: 100 MG
     Route: 065
     Dates: start: 202210
  3. TOPIRAMATE [Suspect]
     Active Substance: TOPIRAMATE
     Indication: Epilepsy
     Dosage: 100 MG
     Route: 065
     Dates: end: 202203
  4. TOPIRAMATE [Suspect]
     Active Substance: TOPIRAMATE
     Dosage: UNK
     Route: 065
  5. CLOBAZAM [Suspect]
     Active Substance: CLOBAZAM
     Indication: Epilepsy
     Dosage: UNK
     Route: 065
     Dates: end: 202203
  6. VALPROATE [Suspect]
     Active Substance: VALPROIC ACID
     Indication: Epilepsy
     Dosage: UNK
     Route: 065
     Dates: start: 200710
  7. VALPROATE [Suspect]
     Active Substance: VALPROIC ACID
     Dosage: 600 MG
     Route: 065
     Dates: start: 202111
  8. OXCARBAZEPINE [Suspect]
     Active Substance: OXCARBAZEPINE
     Indication: Epilepsy
     Dosage: UNK
     Route: 065
  9. LACOSAMIDE [Suspect]
     Active Substance: LACOSAMIDE
     Indication: Epilepsy
     Dosage: 175 MG, QD
     Route: 065
  10. LEVETIRACETAM [Suspect]
     Active Substance: LEVETIRACETAM
     Indication: Epilepsy
     Dosage: 1125 MG, QD
     Route: 065
  11. SULTHIAME [Suspect]
     Active Substance: SULTHIAME
     Indication: Epilepsy
     Dosage: UNK
     Route: 065
  12. PERAMPANEL [Suspect]
     Active Substance: PERAMPANEL
     Indication: Epilepsy
     Dosage: UNK
     Route: 065

REACTIONS (6)
  - Drug ineffective [Unknown]
  - Epilepsy [Unknown]
  - Leukopenia [Recovered/Resolved]
  - Thrombocytopenia [Recovered/Resolved]
  - Aggression [Unknown]
  - Off label use [Unknown]
